FAERS Safety Report 20783716 (Version 1)
Quarter: 2022Q2

REPORT INFORMATION
  Report Type: Spontaneous
  Country: US (occurrence: US)
  Receive Date: 20220504
  Receipt Date: 20220504
  Transmission Date: 20220720
  Serious: Yes (Hospitalization)
  Sender: FDA-Public Use
  Company Number: US-ELI_LILLY_AND_COMPANY-US202204010914

PATIENT
  Age: 74 Year
  Sex: Male

DRUGS (4)
  1. INSULIN LISPRO [Suspect]
     Active Substance: INSULIN LISPRO
     Indication: Type 2 diabetes mellitus
     Dosage: UNK UNK, UNKNOWN
     Route: 065
     Dates: start: 202002
  2. INSULIN LISPRO [Suspect]
     Active Substance: INSULIN LISPRO
     Dosage: 10 U, EACH MORNING
     Route: 065
     Dates: start: 20220422
  3. METFORMIN [Concomitant]
     Active Substance: METFORMIN HYDROCHLORIDE
     Indication: Type 2 diabetes mellitus
     Dosage: 1000 MG, UNKNOWN
  4. GLIMEPIRIDE [Concomitant]
     Active Substance: GLIMEPIRIDE
     Indication: Type 2 diabetes mellitus
     Dosage: 4 MG, UNKNOWN

REACTIONS (4)
  - Polymyalgia rheumatica [Unknown]
  - Blood glucose increased [Unknown]
  - Glaucoma [Unknown]
  - Blood electrolytes increased [Unknown]

NARRATIVE: CASE EVENT DATE: 20220422
